FAERS Safety Report 14434521 (Version 5)
Quarter: 2018Q2

REPORT INFORMATION
  Report Type: Spontaneous
  Country: US (occurrence: US)
  Receive Date: 20180124
  Receipt Date: 20180620
  Transmission Date: 20180711
  Serious: Yes (Other)
  Sender: FDA-Public Use
  Company Number: US-BIOMARINAP-US-2018-116862

PATIENT
  Age: 1 Month
  Sex: Female

DRUGS (1)
  1. ALDURAZYME [Suspect]
     Active Substance: LARONIDASE
     Indication: MUCOPOLYSACCHARIDOSIS I
     Dosage: UNK
     Route: 041
     Dates: start: 20180111, end: 20180605

REACTIONS (2)
  - Pyrexia [Recovering/Resolving]
  - Central venous catheterisation [Recovering/Resolving]

NARRATIVE: CASE EVENT DATE: 20180116
